FAERS Safety Report 7979746-4 (Version None)
Quarter: 2011Q4

REPORT INFORMATION
  Report Type: 
  Country: None (occurrence: None)
  Receive Date: 20111214
  Receipt Date: 20111201
  Transmission Date: 20120403
  Serious: Yes (Other)
  Sender: FDA-Public Use
  Company Number: GB-ROCHE-1017973

PATIENT
  Sex: Female

DRUGS (4)
  1. CISPLATIN [Suspect]
     Indication: GASTRIC CANCER
     Route: 042
     Dates: start: 20101007
  2. EPIRUBICIN HYDROCHLORIDE [Suspect]
     Indication: GASTRIC CANCER
     Route: 042
     Dates: start: 20101007
  3. AVASTIN [Suspect]
     Indication: GASTRIC CANCER
     Route: 042
     Dates: start: 20101007
  4. XELODA [Suspect]
     Indication: GASTRIC CANCER
     Route: 048
     Dates: start: 20101007

REACTIONS (4)
  - WOUND DEHISCENCE [None]
  - IMPAIRED HEALING [None]
  - WOUND INFECTION [None]
  - ABDOMINAL HERNIA [None]
